FAERS Safety Report 6743137-4 (Version None)
Quarter: 2010Q2

REPORT INFORMATION
  Report Type: 
  Country: None (occurrence: None)
  Receive Date: 20100527
  Receipt Date: 20100514
  Transmission Date: 20101027
  Serious: Yes (Other)
  Sender: FDA-Public Use
  Company Number: PHHY2010AU29843

PATIENT
  Sex: Female

DRUGS (1)
  1. GLEEVEC [Suspect]
     Indication: CHRONIC MYELOID LEUKAEMIA
     Dosage: 400 MG, DAILY
     Route: 048

REACTIONS (9)
  - BLISTER [None]
  - CHEILITIS [None]
  - ERYTHEMA [None]
  - GLOSSODYNIA [None]
  - ONYCHOMADESIS [None]
  - PAIN [None]
  - PARONYCHIA [None]
  - RASH [None]
  - SKIN EXFOLIATION [None]
